FAERS Safety Report 24324615 (Version 1)
Quarter: 2024Q3

REPORT INFORMATION
  Report Type: Spontaneous
  Country: AT (occurrence: AT)
  Receive Date: 20240916
  Receipt Date: 20240916
  Transmission Date: 20241016
  Serious: Yes (Death, Other)
  Sender: GILEAD
  Company Number: AT-GILEAD-2024-0683010

PATIENT

DRUGS (1)
  1. TECARTUS [Suspect]
     Active Substance: BREXUCABTAGENE AUTOLEUCEL
     Indication: Product used for unknown indication
     Dosage: INFUSION
     Route: 065
     Dates: start: 20230911, end: 20230911

REACTIONS (1)
  - Death [Fatal]

NARRATIVE: CASE EVENT DATE: 20240803
